FAERS Safety Report 4990288-0 (Version None)
Quarter: 2006Q2

REPORT INFORMATION
  Report Type: 
  Country: None (occurrence: None)
  Receive Date: 20060427
  Receipt Date: 20060413
  Transmission Date: 20061013
  Serious: Yes (Disabling)
  Sender: FDA-Public Use
  Company Number: CIP06000728

PATIENT
  Age: 79 Year
  Sex: Female

DRUGS (5)
  1. ACTONEL [Suspect]
     Indication: OSTEOPOROSIS
     Dosage: 35 MG ONCE WEEKLY, ORAL
     Route: 048
     Dates: start: 20041201
  2. BECONASE AQUA (BECLOMETASONE DIPROPIONATE) [Concomitant]
  3. NEO-CYTAMEN (HYDROXOCOBALAMIN) INJECTION [Concomitant]
  4. PANAMAX (PARACETAMOL) [Concomitant]
  5. TEARS PLUS (POLYVINYL ALCOHOL, POLYVIDONE) DROP [Concomitant]

REACTIONS (4)
  - BONE FRAGMENTATION [None]
  - CELLULITIS [None]
  - OSTEONECROSIS [None]
  - TOOTH DISORDER [None]
